FAERS Safety Report 4412796-3 (Version None)
Quarter: 2004Q3

REPORT INFORMATION
  Report Type: 
  Country: None (occurrence: None)
  Receive Date: 20040727
  Receipt Date: 20040713
  Transmission Date: 20050211
  Serious: Yes (Hospitalization)
  Sender: FDA-Public Use
  Company Number: 207686

PATIENT
  Age: 73 Year
  Sex: Male
  Weight: 99.3 kg

DRUGS (12)
  1. AVASTIN [Suspect]
     Indication: COLORECTAL CANCER METASTATIC
     Dosage: 500 MG Q2W INTRAVENOUS
     Route: 042
     Dates: start: 20040405, end: 20040614
  2. FLUOROURACIL [Suspect]
     Indication: COLORECTAL CANCER METASTATIC
     Dosage: SEE IMAGE
     Route: 040
  3. OXALIPLATIN         (OXALIPLATIN) [Suspect]
     Indication: COLORECTAL CANCER METASTATIC
     Dosage: 400 MG QDX2D/14DC, INTRAVENOUS
     Route: 042
  4. PACERONE [Concomitant]
  5. NEXIUM [Concomitant]
  6. FLOMAX [Concomitant]
  7. LYSINE       (LYSINE) [Concomitant]
  8. ADVAIR DISKUS [Concomitant]
  9. ALBUTEROL INHALER     (ALBTUEROL SULFATE, ALBUTEROL) [Concomitant]
  10. ZYRTEC [Concomitant]
  11. ANZEMET [Concomitant]
  12. DECADRON [Concomitant]

REACTIONS (13)
  - ATELECTASIS [None]
  - CARDIOPULMONARY FAILURE [None]
  - CHEST X-RAY ABNORMAL [None]
  - DEHYDRATION [None]
  - HAEMATOCRIT INCREASED [None]
  - HAEMOGLOBIN DECREASED [None]
  - NAUSEA [None]
  - NEUTROPENIA [None]
  - PLATELET COUNT DECREASED [None]
  - PNEUMONIA [None]
  - PULMONARY OEDEMA [None]
  - PYREXIA [None]
  - VOMITING [None]
